FAERS Safety Report 21529655 (Version 1)
Quarter: 2022Q4

REPORT INFORMATION
  Report Type: Spontaneous
  Country: None (occurrence: US)
  Receive Date: 20221031
  Receipt Date: 20221031
  Transmission Date: 20230113
  Serious: Yes (Other)
  Sender: FDA-Public Use
  Company Number: US-Crown Laboratories, Inc.-2134316

PATIENT
  Age: 94 Year
  Sex: Male
  Weight: 79.545 kg

DRUGS (1)
  1. SARNA (CAMPHOR (NATURAL)\MENTHOL) [Suspect]
     Active Substance: CAMPHOR (NATURAL)\MENTHOL
     Indication: Skin disorder
     Route: 061
     Dates: start: 202204

REACTIONS (4)
  - Dizziness [Recovered/Resolved]
  - Headache [Recovered/Resolved]
  - Intentional product use issue [Unknown]
  - Atrial fibrillation [Unknown]

NARRATIVE: CASE EVENT DATE: 20220401
